FAERS Safety Report 4290418-2 (Version None)
Quarter: 2004Q1

REPORT INFORMATION
  Report Type: 
  Country: None (occurrence: None)
  Receive Date: 20040209
  Receipt Date: 20040129
  Transmission Date: 20041129
  Serious: Yes (Death)
  Sender: FDA-Public Use
  Company Number: 2004194398JP

PATIENT
  Age: 72 Year
  Sex: Female
  Weight: 52 kg

DRUGS (7)
  1. IDAMYCIN [Suspect]
     Indication: MYELODYSPLASTIC SYNDROME
     Dosage: 10 MG, QD, IV
     Route: 042
     Dates: start: 20030619, end: 20030621
  2. CYTOSAR (CYTARABINE, CYTARABINE) POWDER, STERILE [Suspect]
     Indication: MYELODYSPLASTIC SYNDROME
     Dosage: SEE IMAGE
     Route: 042
     Dates: start: 20030619, end: 20030625
  3. CYTOSAR (CYTARABINE, CYTARABINE) POWDER, STERILE [Suspect]
     Indication: MYELODYSPLASTIC SYNDROME
     Dosage: SEE IMAGE
     Route: 042
     Dates: start: 20030801, end: 20030805
  4. MITOXANTRONE INJECTION (MITOXANTRONE HYDROCHLORIDE, MITOXANTRONE HYDRO [Suspect]
     Indication: MYELODYSPLASTIC SYNDROME
     Dosage: 6 MG, QD, IV
     Route: 042
     Dates: start: 20030801, end: 20030803
  5. CEFOTIAM HYDROCHLORIDE [Concomitant]
  6. CEFPIROME SULFATE (CEFPIROME SULFATE) [Concomitant]
  7. MEROPEN (MEROPENEM) [Concomitant]

REACTIONS (8)
  - BLOOD BRAIN BARRIER DEFECT [None]
  - BLOOD PRESSURE INCREASED [None]
  - CONVULSION [None]
  - INFECTION [None]
  - LEUKOENCEPHALOPATHY [None]
  - RENAL DISORDER [None]
  - RESPIRATORY ARREST [None]
  - RESPIRATORY FAILURE [None]
